FAERS Safety Report 6783326-6 (Version None)
Quarter: 2010Q2

REPORT INFORMATION
  Report Type: 
  Country: None (occurrence: None)
  Receive Date: 20100622
  Receipt Date: 20100609
  Transmission Date: 20101027
  Serious: Yes (Death, Other)
  Sender: FDA-Public Use
  Company Number: GB-BAYER-201028440GPV

PATIENT

DRUGS (3)
  1. ALEMTUZUMAB [Suspect]
     Indication: APLASTIC ANAEMIA
     Dosage: DIFFERENT DOSING REGIMENS, NOT SPECIFIED FOR THIS PATIENT
  2. FLUDARABINE [Suspect]
     Indication: APLASTIC ANAEMIA
  3. CYCLOPHOSPHAMIDE [Suspect]
     Indication: APLASTIC ANAEMIA

REACTIONS (3)
  - ACUTE GRAFT VERSUS HOST DISEASE [None]
  - CHRONIC GRAFT VERSUS HOST DISEASE [None]
  - CYTOMEGALOVIRUS INFECTION [None]
